FAERS Safety Report 17466198 (Version 4)
Quarter: 2020Q1

REPORT INFORMATION
  Report Type: Spontaneous
  Country: US (occurrence: US)
  Receive Date: 20200227
  Receipt Date: 20200309
  Transmission Date: 20200409
  Serious: Yes (Hospitalization, Other)
  Sender: FDA-Public Use
  Company Number: US-BIOGEN-2020BI00841684

PATIENT
  Sex: Female

DRUGS (2)
  1. TECFIDERA [Suspect]
     Active Substance: DIMETHYL FUMARATE
     Route: 065
     Dates: start: 20170501, end: 20170918
  2. TECFIDERA [Suspect]
     Active Substance: DIMETHYL FUMARATE
     Indication: MULTIPLE SCLEROSIS
     Route: 065
     Dates: start: 20170501, end: 20170918

REACTIONS (5)
  - Cerebrovascular accident [Recovered/Resolved]
  - Blindness unilateral [Unknown]
  - Reading disorder [Not Recovered/Not Resolved]
  - Memory impairment [Unknown]
  - Multiple sclerosis [Unknown]
